FAERS Safety Report 18223530 (Version 1)
Quarter: 2020Q3

REPORT INFORMATION
  Report Type: Spontaneous
  Country: FR (occurrence: FR)
  Receive Date: 20200902
  Receipt Date: 20200902
  Transmission Date: 20201103
  Serious: Yes (Hospitalization)
  Sender: FDA-Public Use
  Company Number: FR-PFIZER INC-2020336498

PATIENT
  Age: 84 Year
  Sex: Male
  Weight: 82 kg

DRUGS (10)
  1. CORDARONE [Suspect]
     Active Substance: AMIODARONE HYDROCHLORIDE
     Indication: ARRHYTHMIA
     Dosage: 1 TABLET/DAY 5 DAYS A WEEK
     Route: 048
     Dates: end: 20170608
  2. SINTROM [Concomitant]
     Active Substance: ACENOCOUMAROL
     Dosage: 0.5 CAPSULE 2 DAYS/3 AND 0.25 CAPSULE 1 DAY/3
     Route: 048
  3. POLARAMINE [Concomitant]
     Active Substance: DEXCHLORPHENIRAMINE MALEATE
     Indication: PREMEDICATION
     Dosage: 5 MG, SINGLE
     Dates: start: 20200608, end: 20200608
  4. PACLITAXEL. [Suspect]
     Active Substance: PACLITAXEL
     Indication: KAPOSI^S SARCOMA CLASSICAL TYPE
     Dosage: UNK
     Route: 041
     Dates: start: 20170608, end: 20170608
  5. NEBIVOLOL. [Suspect]
     Active Substance: NEBIVOLOL
     Indication: ARRHYTHMIA
     Dosage: 5 MG, 1X/DAY
     Route: 048
     Dates: end: 20170608
  6. FUROSEMIDE. [Concomitant]
     Active Substance: FUROSEMIDE
     Dosage: 80 MG, 1X/DAY
     Route: 048
  7. LASILIX SPECIAL [FUROSEMIDE SODIUM] [Concomitant]
     Active Substance: FUROSEMIDE SODIUM
     Dosage: 0.25 DF, 1X/DAY
     Route: 048
  8. LANTUS [Concomitant]
     Active Substance: INSULIN GLARGINE
     Dosage: 18 IU, 1X/DAY
     Route: 058
  9. PREDNISONE. [Concomitant]
     Active Substance: PREDNISONE
     Indication: PREMEDICATION
     Dosage: 120 MG, SINGLE
     Dates: start: 20200608, end: 20200608
  10. CALCIDOSE VITAMINE D [Concomitant]
     Active Substance: CALCIUM\CHOLECALCIFEROL
     Dosage: 2 DF, 1X/DAY
     Route: 048

REACTIONS (3)
  - Atrioventricular block [Recovered/Resolved]
  - Atrial tachycardia [Recovered/Resolved]
  - Bundle branch block [Recovered/Resolved]

NARRATIVE: CASE EVENT DATE: 201707
